FAERS Safety Report 10912362 (Version 2)
Quarter: 2015Q3

REPORT INFORMATION
  Report Type: Other
  Country: FR (occurrence: JP)
  Receive Date: 20150313
  Receipt Date: 20150707
  Transmission Date: 20151125
  Serious: Yes (Hospitalization)
  Sender: FDA-Public Use
  Company Number: JP-FRI-1000075044

PATIENT
  Sex: Female

DRUGS (7)
  1. FLUNITRAZEPAM [Concomitant]
     Active Substance: FLUNITRAZEPAM
     Route: 048
  2. ROPINIROLE HYDROCHLORIDE. [Concomitant]
     Active Substance: ROPINIROLE HYDROCHLORIDE
     Route: 048
  3. LEVODOPA [Concomitant]
     Active Substance: LEVODOPA
     Route: 048
  4. BERAPROST SODIUM [Concomitant]
     Active Substance: BERAPROST SODIUM
     Route: 048
  5. MILNACIPRAN [Suspect]
     Active Substance: MILNACIPRAN
     Indication: DEPRESSION
     Route: 048
  6. FUROSEMIDE. [Concomitant]
     Active Substance: FUROSEMIDE
     Route: 048
  7. FAMOTIDINE. [Concomitant]
     Active Substance: FAMOTIDINE
     Route: 048

REACTIONS (3)
  - Hydronephrosis [Unknown]
  - Pyelonephritis [Unknown]
  - Dysuria [Recovered/Resolved]
